FAERS Safety Report 8791486 (Version 1)
Quarter: 2012Q4

REPORT INFORMATION
  Report Type: Spontaneous
  Country: US (occurrence: None)
  Receive Date: 20120914
  Receipt Date: 20120914
  Transmission Date: 20130627
  Serious: Yes (Life-Threatening, Hospitalization, Disabling, Other)
  Sender: FDA-Public Use
  Company Number: None

PATIENT
  Age: 31 Year
  Sex: Male
  Weight: 80.74 kg

DRUGS (2)
  1. CLOZAPINE [Suspect]
     Dosage: clozapine 75mg morning
     Dates: start: 19800919
  2. CLOZAPINE [Suspect]
     Dosage: clozapine 100mg night

REACTIONS (1)
  - Dyskinesia [None]
